FAERS Safety Report 4994796-8 (Version None)
Quarter: 2006Q2

REPORT INFORMATION
  Report Type: 
  Country: None (occurrence: None)
  Receive Date: 20060503
  Receipt Date: 20060418
  Transmission Date: 20061013
  Serious: Yes (Other)
  Sender: FDA-Public Use
  Company Number: USA-2006-0024033

PATIENT
  Age: 46 Year
  Sex: Male
  Weight: 70.3 kg

DRUGS (3)
  1. OXYCODONE HCL [Suspect]
     Indication: BACK PAIN
     Dosage: 80 MG, BID
  2. OXYFAST COCENTRATE (OXYCODONE HYDROCHLORIDE) [Concomitant]
  3. ZANTAC (RANITDINE HYDROCHLORIDE) [Concomitant]

REACTIONS (9)
  - FEELING ABNORMAL [None]
  - FEMUR FRACTURE [None]
  - MALAISE [None]
  - NAUSEA [None]
  - PHARMACEUTICAL PRODUCT COMPLAINT [None]
  - ROAD TRAFFIC ACCIDENT [None]
  - STOMACH DISCOMFORT [None]
  - THERAPEUTIC RESPONSE UNEXPECTED WITH DRUG SUBSTITUTION [None]
  - VOMITING [None]
